FAERS Safety Report 19376122 (Version 1)
Quarter: 2021Q2

REPORT INFORMATION
  Report Type: Spontaneous
  Country: BR (occurrence: BR)
  Receive Date: 20210604
  Receipt Date: 20210604
  Transmission Date: 20210717
  Serious: Yes (Other)
  Sender: FDA-Public Use
  Company Number: BR-ORGANON-O2106BRA000161

PATIENT
  Age: 73 Year
  Sex: Female
  Weight: 72 kg

DRUGS (26)
  1. DOMPERIDONE [Concomitant]
     Active Substance: DOMPERIDONE
     Indication: PROPHYLAXIS
     Dosage: UNK, TWICE A DAY, AFTER LUNCH AND AFTER DINNER
  2. PANTOPRAZOLE [Concomitant]
     Active Substance: PANTOPRAZOLE
     Dosage: ONE TABLET, ONCE A DAY, IN THE MORNING
     Route: 048
  3. DELLER [DESLORATADINE] [Concomitant]
     Indication: FIBROMYALGIA
     Dosage: UNK, ONCE A DAY
  4. ANORO [Concomitant]
     Active Substance: UMECLIDINIUM BROMIDE\VILANTEROL TRIFENATATE
     Indication: CHRONIC OBSTRUCTIVE PULMONARY DISEASE
     Dosage: A PILL ONCE A DAY IN THE MORNING
     Route: 048
  5. PIEMONTE [MONTELUKAST] [Concomitant]
     Indication: CHRONIC OBSTRUCTIVE PULMONARY DISEASE
     Dosage: TAKES A PILL ONCE A DAY, AT NIGHT
     Route: 048
  6. ATENSINA [Concomitant]
     Active Substance: CLONIDINE
     Dosage: TWO PILLS TWICE A DAY
     Route: 048
  7. INDAPAMIDE. [Concomitant]
     Active Substance: INDAPAMIDE
     Dosage: 1.5 MILLIGRAM, ONCE A DAY IN THE MORNING (QAM)
     Route: 048
  8. ALPRAZOLAN [Concomitant]
     Active Substance: ALPRAZOLAM
     Dosage: USES A 2 MG PILL EVERY DAY AT NIGHT BEFORE GOING TO BED, THE DAY THE PATIENT FEELS MORE ^NERVOUS^ SH
     Route: 048
  9. CLOPIDOGREL [Concomitant]
     Active Substance: CLOPIDOGREL BISULFATE
     Indication: ANTICOAGULANT THERAPY
     Dosage: A PILL A DAY AFTER LUNCH
     Route: 048
  10. ROSUVASTATIN. [Concomitant]
     Active Substance: ROSUVASTATIN
     Indication: BLOOD CHOLESTEROL ABNORMAL
     Dosage: ONE PILL A DAY AT NIGHT
     Route: 048
  11. VITAMIN D NOS [Concomitant]
     Active Substance: VITAMIN D NOS
     Indication: MUSCLE ATROPHY
     Dosage: UNK, EVERY DAY AFTER LUNCH
  12. LOTAR [AMLODIPINE BESILATE;LOSARTAN POTASSIUM] [Concomitant]
     Dosage: ONE PILL, ONCE A DAY
     Route: 048
  13. ALPRAZOLAN [Concomitant]
     Active Substance: ALPRAZOLAM
     Dosage: USES A 2 MG PILL EVERY DAY AT NIGHT BEFORE GOING TO BED, THE DAY THE PATIENT FEELS MORE ^NERVOUS^ SH
     Route: 048
  14. CARDIZEN [Concomitant]
     Dosage: SUSTAINED RELEASE (SR), ONE PILL TWICE A DAY, ONE IN THE MORNING AND ANOTHER AT NIGHT
     Route: 048
  15. DIPIRONE [Concomitant]
     Active Substance: METAMIZOLE SODIUM
     Indication: ARTHRALGIA
     Dosage: UNK
  16. SUSTRATE [Concomitant]
     Active Substance: PROPATYL NITRATE
     Dosage: THREE PILLS A DAY
     Route: 048
  17. NASONEX [Suspect]
     Active Substance: MOMETASONE FUROATE
     Indication: RHINITIS ALLERGIC
     Dosage: 1 SPRAY IN EACH NOSTRIL, BID (120 ATM)
  18. PREDNISONE. [Concomitant]
     Active Substance: PREDNISONE
     Indication: CHRONIC OBSTRUCTIVE PULMONARY DISEASE
     Dosage: ONE PILL EVERY 12 HOURS, USES WHEN SHE IS IN CRISIS
  19. OXIMAX [Concomitant]
     Active Substance: MOMETASONE FUROATE
     Indication: CHRONIC OBSTRUCTIVE PULMONARY DISEASE
     Dosage: UNK, QD (AROUND 5PM OR 6PM, ONCE A DAY)
  20. ZOLPIDEM [Concomitant]
     Active Substance: ZOLPIDEM TARTRATE
     Indication: SLEEP DISORDER
     Dosage: UNK, AT NIGHT
  21. NASONEX [Suspect]
     Active Substance: MOMETASONE FUROATE
     Indication: RHINITIS ALLERGIC
     Dosage: ONE SPRAY IN EACH NOSTRIL TWICE DAILY (120 ATM)
     Dates: start: 2018
  22. GLIFAGE XR [Concomitant]
     Active Substance: METFORMIN HYDROCHLORIDE
     Indication: DIABETES MELLITUS
     Dosage: 4 PILLS A DAY, TWO AFTER LUNCH AND TWO AFTER DINNER
     Route: 048
  23. EZETIMIBA [Concomitant]
     Active Substance: EZETIMIBE
     Indication: BLOOD CHOLESTEROL ABNORMAL
     Dosage: UNK, AT NIGHT (QD)
  24. EXTIMA [Concomitant]
     Dosage: UNK, EVERY MORNING.
  25. CEFALIV [Concomitant]
     Indication: HEADACHE
     Dosage: UNK
  26. KETOROLAC [Concomitant]
     Active Substance: KETOROLAC TROMETHAMINE
     Indication: PAIN
     Dosage: UNK

REACTIONS (11)
  - Aphthous ulcer [Recovering/Resolving]
  - Chronic obstructive pulmonary disease [Recovered/Resolved]
  - Poor quality device used [Unknown]
  - Hypothyroidism [Not Recovered/Not Resolved]
  - Rotator cuff syndrome [Unknown]
  - Confusional state [Recovered/Resolved]
  - Blood uric acid abnormal [Unknown]
  - Wrong technique in device usage process [Unknown]
  - Product packaging quantity issue [Unknown]
  - Road traffic accident [Unknown]
  - Device malfunction [Unknown]

NARRATIVE: CASE EVENT DATE: 202105
